FAERS Safety Report 10042960 (Version 2)
Quarter: 2014Q2

REPORT INFORMATION
  Report Type: Report from Study
  Country: GB (occurrence: GB)
  Receive Date: 20140328
  Receipt Date: 20140403
  Transmission Date: 20141212
  Serious: Yes (Hospitalization, Disabling)
  Sender: FDA-Public Use
  Company Number: GB-ROCHE-1368365

PATIENT
  Age: 77 Year
  Sex: Male
  Weight: 98.4 kg

DRUGS (16)
  1. RITUXIMAB [Suspect]
     Indication: B-CELL LYMPHOMA
     Route: 042
     Dates: start: 20120718
  2. CYCLOPHOSPHAMIDE [Suspect]
     Indication: B-CELL LYMPHOMA
     Dosage: FREQUENCY AS PER PROTOCOL : DAY 1-3, REPEATED EVERY 21 DAYS FOR 8 CYCLES.
     Route: 048
     Dates: start: 20120718
  3. VINCRISTINE [Suspect]
     Indication: B-CELL LYMPHOMA
     Dosage: FREQUENCY AS PER PROTOCOL : DAY 1, REPEATED EVERY 21 DAYS FOR 8 CYCLES.
     Route: 042
     Dates: start: 20120718
  4. PREDNISOLONE [Suspect]
     Indication: B-CELL LYMPHOMA
     Dosage: FREQUENCY AS PER PROTOCOL : DAY 1-5, REPEATED EVERY 21 DAYS FOR 8 CYCLES.
     Route: 048
     Dates: start: 20120718
  5. ASPIRIN [Concomitant]
     Indication: CARDIAC DISORDER
     Dosage: EVERYDAY
     Route: 048
     Dates: start: 200809
  6. CLOPIDOGREL [Concomitant]
     Indication: CARDIAC DISORDER
     Dosage: EVERYDAY
     Route: 048
     Dates: start: 200809
  7. SIMVASTATIN [Concomitant]
     Indication: HYPERCHOLESTEROLAEMIA
     Dosage: EVERYDAY
     Route: 048
     Dates: start: 200809, end: 20140317
  8. FUROSEMIDE [Concomitant]
     Indication: HYPERTENSION
     Dosage: EVERYDAY
     Route: 048
     Dates: start: 200809
  9. MEROPENEM [Concomitant]
     Dosage: EVERYDAY
     Route: 042
     Dates: start: 20140317, end: 20140321
  10. ENOXAPARIN [Concomitant]
     Indication: PROPHYLAXIS
     Dosage: EVERYDAY
     Route: 058
     Dates: start: 20140318, end: 20140320
  11. ATORVASTATIN [Concomitant]
     Indication: CARDIAC DISORDER
     Dosage: EVERYDAY
     Route: 048
     Dates: start: 20140318
  12. LINAGLIPTIN [Concomitant]
     Indication: TYPE 2 DIABETES MELLITUS
     Dosage: EVERYDAY
     Route: 048
     Dates: start: 20140317
  13. RAMIPRIL [Concomitant]
     Indication: CARDIAC DISORDER
     Dosage: EVERYDAY
     Route: 048
     Dates: start: 20140321
  14. BISOPROLOL [Concomitant]
     Indication: HYPERTENSION
     Dosage: EVERYDAY
     Route: 048
     Dates: start: 20140321
  15. PYRIDOXINE [Concomitant]
     Dosage: EVERYDAY
     Route: 048
     Dates: start: 20140320
  16. GABAPENTIN [Concomitant]
     Indication: ANALGESIC THERAPY
     Dosage: EVERYDAY
     Route: 048
     Dates: start: 20140320

REACTIONS (2)
  - Renal failure [Recovered/Resolved with Sequelae]
  - Sepsis [Recovered/Resolved with Sequelae]
